FAERS Safety Report 8558879-8 (Version None)
Quarter: 2012Q3

REPORT INFORMATION
  Report Type: 
  Country: None (occurrence: None)
  Receive Date: 20120801
  Receipt Date: 20120727
  Transmission Date: 20120928
  Serious: Yes (Other)
  Sender: FDA-Public Use
  Company Number: US-009507513-1207USA011638

PATIENT

DRUGS (7)
  1. PREMARIN [Concomitant]
  2. ASPIRIN [Concomitant]
  3. JANUMET [Suspect]
     Indication: DIABETES MELLITUS
     Dosage: 500MG/50
     Route: 048
  4. JANUMET [Suspect]
     Dosage: 500MG/50MG
     Route: 048
  5. LISINOPRIL [Concomitant]
  6. TRILIPIX [Concomitant]
  7. VITAMIN D (UNSPECIFIED) [Concomitant]

REACTIONS (1)
  - PANCREATITIS [None]
